FAERS Safety Report 17114268 (Version 3)
Quarter: 2024Q1

REPORT INFORMATION
  Report Type: Report from Study
  Country: IT (occurrence: IT)
  Receive Date: 20191205
  Receipt Date: 20240228
  Transmission Date: 20240410
  Serious: Yes (Hospitalization)
  Sender: FDA-Public Use
  Company Number: None

PATIENT
  Age: 51 Year
  Sex: Female
  Weight: 55 kg

DRUGS (5)
  1. DOCETAXEL [Suspect]
     Active Substance: DOCETAXEL\DOCETAXEL ANHYDROUS
     Indication: Breast cancer metastatic
     Dosage: DOSAGE TEXT: 116 MILLIGRAM, 3XW (MOST RECENT DOSE RECEIVED ON 27/MAR/2017,18/APR/2017), 348 MG
     Route: 042
     Dates: start: 20170119
  2. DOCETAXEL [Suspect]
     Active Substance: DOCETAXEL\DOCETAXEL ANHYDROUS
     Indication: Breast cancer metastatic
     Dosage: SUBSEQUENT DOSES RECEIVED ON 27/MAR/2017, 18/APR/2017, 09/MAY/2017
     Route: 042
     Dates: start: 20170119
  3. PERTUZUMAB [Suspect]
     Active Substance: PERTUZUMAB
     Indication: Breast cancer metastatic
     Dosage: DOSAGE TEXT: 840 MILLIGRAM, 3XW (MOST RECENT DOSE PRIOR TO EVENT:13/FEB/2017), 2520 MG
     Route: 042
     Dates: start: 20170119
  4. TRASTUZUMAB [Suspect]
     Active Substance: TRASTUZUMAB
     Indication: Breast cancer metastatic
     Dosage: DOSAGE TEXT: 8 MILLIGRAM/KILOGRAM, 3XW (MOST RECENT DOSE PRIOR TO THE EVENT WAS 13/FEB/2017), 24 ...
     Route: 042
     Dates: start: 20170119
  5. CHOLECALCIFEROL [Concomitant]
     Active Substance: CHOLECALCIFEROL
     Indication: Product used for unknown indication
     Dosage: ONGOING = CHECKED
     Route: 065
     Dates: start: 20170919

REACTIONS (5)
  - Paraesthesia [Recovered/Resolved]
  - Presyncope [Recovered/Resolved]
  - Breast pain [Recovered/Resolved]
  - Vascular access site pain [Recovered/Resolved]
  - Paraesthesia [Recovered/Resolved]

NARRATIVE: CASE EVENT DATE: 20170418
